FAERS Safety Report 4862307-3 (Version None)
Quarter: 2005Q4

REPORT INFORMATION
  Report Type: 
  Country: None (occurrence: None)
  Receive Date: 20051221
  Receipt Date: 20051118
  Transmission Date: 20060501
  Serious: Yes (Death, Life-Threatening, Hospitalization, Other)
  Sender: FDA-Public Use
  Company Number: DE-AVENTIS-200512657DE

PATIENT
  Age: 69 Year
  Sex: Female
  Weight: 55 kg

DRUGS (9)
  1. ARAVA [Suspect]
     Indication: RHEUMATOID ARTHRITIS
     Route: 048
     Dates: start: 20001001, end: 20001001
  2. ARAVA [Suspect]
     Route: 048
     Dates: start: 20001001
  3. ARAVA [Suspect]
     Route: 048
  4. ARAVA [Suspect]
     Route: 048
  5. URBASON [Suspect]
     Indication: RHEUMATOID ARTHRITIS
     Route: 048
  6. REWODINA 25 [Suspect]
     Indication: RHEUMATOID ARTHRITIS
     Route: 048
  7. ISOKET [Concomitant]
     Indication: CARDIAC DISORDER
     Route: 048
  8. L-THYROXIN [Concomitant]
     Indication: HYPOTHYROIDISM
     Route: 048
  9. CAPTOPRIL [Concomitant]
     Indication: HYPERTENSION

REACTIONS (7)
  - CARDIO-RESPIRATORY ARREST [None]
  - IMMUNE SYSTEM DISORDER [None]
  - MULTI-ORGAN FAILURE [None]
  - NECROTISING FASCIITIS [None]
  - PSEUDOMONAL SEPSIS [None]
  - SEPSIS [None]
  - SHOCK [None]
